FAERS Safety Report 15138776 (Version 2)
Quarter: 2018Q3

REPORT INFORMATION
  Report Type: Spontaneous
  Country: US (occurrence: US)
  Receive Date: 20180713
  Receipt Date: 20180801
  Transmission Date: 20181010
  Serious: Yes (Other)
  Sender: FDA-Public Use
  Company Number: US-AMGEN-USASP2018093625

PATIENT
  Age: 74 Year
  Sex: Male
  Weight: 76.64 kg

DRUGS (3)
  1. ENBREL [Suspect]
     Active Substance: ETANERCEPT
     Indication: PUSTULAR PSORIASIS
     Dosage: UNK UNK, 2 TIMES/WK
     Route: 058
     Dates: start: 20180627, end: 20180715
  2. ENBREL [Suspect]
     Active Substance: ETANERCEPT
     Indication: ECZEMA
  3. ENBREL [Suspect]
     Active Substance: ETANERCEPT
     Indication: PSORIASIS

REACTIONS (5)
  - Fall [Unknown]
  - Fatigue [Unknown]
  - Contusion [Unknown]
  - Generalised tonic-clonic seizure [Recovered/Resolved]
  - Eye haematoma [Unknown]

NARRATIVE: CASE EVENT DATE: 2018
